FAERS Safety Report 7978667-0 (Version None)
Quarter: 2011Q4

REPORT INFORMATION
  Report Type: 
  Country: None (occurrence: None)
  Receive Date: 20111214
  Receipt Date: 20111206
  Transmission Date: 20120403
  Serious: Yes (Hospitalization)
  Sender: FDA-Public Use
  Company Number: SE-US-EMD SERONO, INC.-7097050

PATIENT
  Sex: Male

DRUGS (4)
  1. LYRICA [Concomitant]
  2. SERTRALINE HYDROCHLORIDE [Concomitant]
  3. CANDESARTAN CILEXETIL [Concomitant]
  4. REBIF [Suspect]
     Indication: RELAPSING-REMITTING MULTIPLE SCLEROSIS
     Route: 058
     Dates: start: 20100201, end: 20111118

REACTIONS (4)
  - PULMONARY THROMBOSIS [None]
  - CHILLS [None]
  - RENAL NEOPLASM [None]
  - PYREXIA [None]
